FAERS Safety Report 24424826 (Version 2)
Quarter: 2024Q4

REPORT INFORMATION
  Report Type: Spontaneous
  Country: NL (occurrence: NL)
  Receive Date: 20241010
  Receipt Date: 20241024
  Transmission Date: 20250114
  Serious: Yes (Other)
  Sender: TEVA
  Company Number: None

PATIENT
  Age: 67 Year
  Sex: Female
  Weight: 98 kg

DRUGS (3)
  1. AJOVY [Suspect]
     Active Substance: FREMANEZUMAB-VFRM
     Indication: Migraine
     Dosage: ONCE EVERY 4 WEEKS, FREMANEZUMAB / AJOVY INJVLST 150MG/ML PEN 1,5ML
     Route: 065
     Dates: start: 20240414
  2. RELPAX [Concomitant]
     Active Substance: ELETRIPTAN HYDROBROMIDE
     Indication: Product used for unknown indication
     Dosage: ELETRIPTAN FO / RELPAX TABLET FILM COVER
     Route: 065
  3. TOPAMAX [Concomitant]
     Active Substance: TOPIRAMATE
     Indication: Product used for unknown indication
     Dosage: 100 MG AND IS TAPERING OFF, TOPIRAMATE
     Route: 065

REACTIONS (1)
  - Polyarthritis [Recovering/Resolving]
